FAERS Safety Report 22979938 (Version 3)
Quarter: 2023Q4

REPORT INFORMATION
  Report Type: Report from Study
  Country: US (occurrence: US)
  Receive Date: 20230925
  Receipt Date: 20231117
  Transmission Date: 20240110
  Serious: No
  Sender: FDA-Public Use
  Company Number: US-002147023-NVSC2023US202126

PATIENT
  Sex: Male

DRUGS (2)
  1. ENTRESTO [Suspect]
     Active Substance: SACUBITRIL\VALSARTAN
     Indication: Product used for unknown indication
     Dosage: UNK UNK, BID (24/26 MG)
     Route: 065
     Dates: start: 202304
  2. CARVEDILOL [Suspect]
     Active Substance: CARVEDILOL
     Indication: Product used for unknown indication
     Dosage: UNK
     Route: 065

REACTIONS (9)
  - Gait disturbance [Recovered/Resolved]
  - Pain [Unknown]
  - Weight fluctuation [Unknown]
  - Animal bite [Unknown]
  - Finger deformity [Unknown]
  - Asthenia [Recovered/Resolved]
  - Vertigo [Unknown]
  - Nausea [Unknown]
  - Dizziness [Recovered/Resolved]
